FAERS Safety Report 12417290 (Version 1)
Quarter: 2016Q2

REPORT INFORMATION
  Report Type: Spontaneous
  Country: BR (occurrence: BR)
  Receive Date: 20160530
  Receipt Date: 20160530
  Transmission Date: 20160815
  Serious: Yes (Other)
  Sender: FDA-Public Use
  Company Number: BR-JNJFOC-20130704941

PATIENT
  Age: 15 Year
  Sex: Male
  Weight: 70 kg

DRUGS (3)
  1. IMURAN [Concomitant]
     Active Substance: AZATHIOPRINE
     Indication: COLITIS
     Route: 065
     Dates: start: 200908
  2. REMICADE [Suspect]
     Active Substance: INFLIXIMAB
     Indication: COLITIS ULCERATIVE
     Route: 042
     Dates: start: 201101
  3. REMICADE [Suspect]
     Active Substance: INFLIXIMAB
     Indication: COLITIS ULCERATIVE
     Route: 042
     Dates: start: 201305

REACTIONS (4)
  - Colitis ulcerative [Recovered/Resolved]
  - Incorrect dose administered [Unknown]
  - Therapeutic response unexpected [Unknown]
  - Weight increased [Unknown]

NARRATIVE: CASE EVENT DATE: 201211
